FAERS Safety Report 7587704-7 (Version None)
Quarter: 2011Q3

REPORT INFORMATION
  Report Type: 
  Country: None (occurrence: None)
  Receive Date: 20110704
  Receipt Date: 20110701
  Transmission Date: 20111222
  Serious: Yes (Hospitalization)
  Sender: FDA-Public Use
  Company Number: DE-BRISTOL-MYERS SQUIBB COMPANY-15834963

PATIENT
  Age: 64 Year
  Sex: Female

DRUGS (8)
  1. LEVEMIR [Suspect]
     Indication: DIABETES MELLITUS
  2. NEURONTIN [Concomitant]
     Dates: start: 20110119
  3. BLINDED: SAXAGLIPTIN [Suspect]
     Indication: TYPE 2 DIABETES MELLITUS
     Dosage: INTERRUPTED ON 07JUN2011
     Dates: start: 20101210
  4. PLACEBO [Suspect]
     Indication: TYPE 2 DIABETES MELLITUS
     Dosage: INTERRUPTED ON 07JUN2011
     Dates: start: 20101210
  5. ASPIRIN [Concomitant]
     Dosage: 1 DF={100 MG
  6. APIDRA [Suspect]
     Indication: DIABETES MELLITUS
  7. NOVALGIN [Concomitant]
     Dates: start: 20110119
  8. METFORMIN HCL [Suspect]
     Indication: TYPE 2 DIABETES MELLITUS

REACTIONS (1)
  - PANCREATITIS [None]
